FAERS Safety Report 7664472-1 (Version None)
Quarter: 2011Q3

REPORT INFORMATION
  Report Type: 
  Country: None (occurrence: None)
  Receive Date: 20110806
  Receipt Date: 20110218
  Transmission Date: 20111222
  Serious: No
  Sender: FDA-Public Use
  Company Number: US-ABBOTT-11P-163-0706203-00

PATIENT
  Sex: Female
  Weight: 106.24 kg

DRUGS (5)
  1. BLOOD PRESSURE MEDS [Concomitant]
     Indication: PRODUCT USED FOR UNKNOWN INDICATION
  2. GLIPIZIDE [Concomitant]
     Indication: PRODUCT USED FOR UNKNOWN INDICATION
  3. ASPIRIN [Concomitant]
     Indication: PRODUCT USED FOR UNKNOWN INDICATION
     Dosage: AT BEDTIME
  4. NIASPAN [Suspect]
     Indication: BLOOD CHOLESTEROL INCREASED
     Dosage: AT BEDTIME
     Dates: start: 20110121
  5. METFORMIN HCL [Concomitant]
     Indication: PRODUCT USED FOR UNKNOWN INDICATION

REACTIONS (5)
  - DIZZINESS [None]
  - HEADACHE [None]
  - FLUSHING [None]
  - INSOMNIA [None]
  - BLOOD GLUCOSE INCREASED [None]
